FAERS Safety Report 5112440-6 (Version None)
Quarter: 2006Q3

REPORT INFORMATION
  Report Type: 
  Country: None (occurrence: None)
  Receive Date: 20060922
  Receipt Date: 20060912
  Transmission Date: 20061208
  Serious: Yes (Other)
  Sender: FDA-Public Use
  Company Number: 2006UW17927

PATIENT
  Age: 53 Year
  Sex: Female

DRUGS (1)
  1. ARIMIDEX [Suspect]
     Indication: BREAST CANCER STAGE III
     Route: 048
     Dates: start: 20050601

REACTIONS (6)
  - CONNECTIVE TISSUE DISORDER [None]
  - EXTRASKELETAL OSSIFICATION [None]
  - JOINT DESTRUCTION [None]
  - METAPLASIA [None]
  - OEDEMA PERIPHERAL [None]
  - PAIN IN EXTREMITY [None]
